FAERS Safety Report 5144036-4 (Version None)
Quarter: 2006Q4

REPORT INFORMATION
  Report Type: 
  Country: None (occurrence: None)
  Receive Date: 20061106
  Receipt Date: 20060601
  Transmission Date: 20070319
  Serious: No
  Sender: FDA-Public Use
  Company Number: US-GLAXOSMITHKLINE-A0607579A

PATIENT
  Sex: Male

DRUGS (2)
  1. AMOXICILLIN [Suspect]
     Indication: EAR INFECTION
     Route: 048
  2. AUGMENTIN '125' [Suspect]
     Indication: EAR INFECTION
     Dosage: 600MG TWICE PER DAY
     Route: 048

REACTIONS (4)
  - ANXIETY [None]
  - DRUG INEFFECTIVE [None]
  - FEAR [None]
  - PERSONALITY CHANGE [None]
